FAERS Safety Report 13102485 (Version 1)
Quarter: 2017Q1

REPORT INFORMATION
  Report Type: Spontaneous
  Country: US (occurrence: US)
  Receive Date: 20170110
  Receipt Date: 20170110
  Transmission Date: 20170428
  Serious: Yes (Death, Other)
  Sender: FDA-Public Use
  Company Number: US-MYLANLABS-2017M1000400

PATIENT

DRUGS (1)
  1. DEXAMETHASONE. [Suspect]
     Active Substance: DEXAMETHASONE
     Indication: SPINAL CORD COMPRESSION
     Route: 065

REACTIONS (2)
  - Multiple organ dysfunction syndrome [Fatal]
  - Tumour lysis syndrome [Fatal]
